FAERS Safety Report 14796323 (Version 1)
Quarter: 2018Q2

REPORT INFORMATION
  Report Type: Report from Study
  Country: US (occurrence: US)
  Receive Date: 20180423
  Receipt Date: 20180423
  Transmission Date: 20180711
  Serious: No
  Sender: FDA-Public Use
  Company Number: US-AMGEN-USASL2018005261

PATIENT
  Age: 58 Year
  Sex: Female
  Weight: 85 kg

DRUGS (3)
  1. REPATHA [Suspect]
     Active Substance: EVOLOCUMAB
     Indication: ARTERIOSCLEROSIS
     Dosage: 140 MG, Q2WK
     Route: 065
  2. HYDROCODONE [Concomitant]
     Active Substance: HYDROCODONE
     Indication: PAIN
  3. BOTOX [Concomitant]
     Active Substance: ONABOTULINUMTOXINA
     Indication: PAIN

REACTIONS (1)
  - Headache [Not Recovered/Not Resolved]
